FAERS Safety Report 16694689 (Version 3)
Quarter: 2019Q3

REPORT INFORMATION
  Report Type: Spontaneous
  Country: PT (occurrence: PT)
  Receive Date: 20190812
  Receipt Date: 20190913
  Transmission Date: 20191004
  Serious: Yes (Hospitalization, Other)
  Sender: FDA-Public Use
  Company Number: PT-MYLANLABS-2019M1074664

PATIENT
  Age: 68 Year
  Sex: Male

DRUGS (2)
  1. IBUPROFEN. [Suspect]
     Active Substance: IBUPROFEN
     Dosage: 1200 MILLIGRAM, Q2D
     Route: 065
  2. IBUPROFEN. [Suspect]
     Active Substance: IBUPROFEN
     Indication: DRESSLER^S SYNDROME
     Dosage: 600 MG, BID
     Route: 065

REACTIONS (7)
  - Proteinuria [Unknown]
  - Hypersensitivity [Unknown]
  - Blood creatinine increased [Recovered/Resolved]
  - Acute kidney injury [Recovering/Resolving]
  - Haematuria [Unknown]
  - Product use in unapproved indication [Unknown]
  - Off label use [Unknown]
